FAERS Safety Report 10061889 (Version 1)
Quarter: 2014Q2

REPORT INFORMATION
  Report Type: Spontaneous
  Country: US (occurrence: US)
  Receive Date: 20140407
  Receipt Date: 20140407
  Transmission Date: 20141212
  Serious: No
  Sender: FDA-Public Use
  Company Number: US-BIOGENIDEC-2014BI031956

PATIENT
  Sex: Female

DRUGS (5)
  1. TYSABRI [Suspect]
     Indication: MULTIPLE SCLEROSIS
     Route: 042
     Dates: start: 20070906
  2. RITALIN [Concomitant]
     Indication: FATIGUE
  3. DIAZEPAM [Concomitant]
  4. HYDROCODONE-ACETAMINOPHEN [Concomitant]
     Indication: PAIN IN EXTREMITY
  5. MOTRIN [Concomitant]
     Indication: PAIN IN EXTREMITY

REACTIONS (2)
  - Migraine with aura [Unknown]
  - Medication overuse headache [Unknown]
